FAERS Safety Report 20889372 (Version 2)
Quarter: 2022Q3

REPORT INFORMATION
  Report Type: Spontaneous
  Country: US (occurrence: US)
  Receive Date: 20220530
  Receipt Date: 20220708
  Transmission Date: 20221026
  Serious: Yes (Other)
  Sender: FDA-Public Use
  Company Number: US-Calliditas-2022CAL00088

PATIENT
  Age: 36 Year
  Sex: Female

DRUGS (1)
  1. TARPEYO [Suspect]
     Active Substance: BUDESONIDE
     Indication: IgA nephropathy
     Dosage: 16 MG (4 MG CAPSULES) DAILY
     Route: 050
     Dates: start: 20220505

REACTIONS (6)
  - Peripheral swelling [Unknown]
  - Muscle spasms [Unknown]
  - Migraine [Unknown]
  - Drug ineffective [Unknown]
  - End stage renal disease [Unknown]
  - Dialysis [Unknown]
